FAERS Safety Report 21942363 (Version 1)
Quarter: 2023Q1

REPORT INFORMATION
  Report Type: Report from Study
  Country: US (occurrence: US)
  Receive Date: 20230202
  Receipt Date: 20230202
  Transmission Date: 20230418
  Serious: No
  Sender: FDA-Public Use
  Company Number: US-EXELIXIS-CABO-22057583

PATIENT
  Sex: Male

DRUGS (3)
  1. CABOMETYX [Suspect]
     Active Substance: CABOZANTINIB S-MALATE
     Indication: Product used for unknown indication
     Dosage: 40 MG, QD
     Route: 048
  2. CABOMETYX [Suspect]
     Active Substance: CABOZANTINIB S-MALATE
     Dosage: 40 MG, QOD
     Route: 048
     Dates: end: 20221116
  3. CABOMETYX [Suspect]
     Active Substance: CABOZANTINIB S-MALATE
     Dosage: 40 MG, QD
     Route: 048

REACTIONS (13)
  - Erythema [Unknown]
  - Intervertebral disc protrusion [Unknown]
  - Peripheral swelling [Unknown]
  - Pain [Unknown]
  - Rash [Unknown]
  - Stomatitis [Unknown]
  - Insomnia [Unknown]
  - Blood pressure increased [Not Recovered/Not Resolved]
  - Fatigue [Unknown]
  - Diarrhoea [Unknown]
  - Myositis [Unknown]
  - Inappropriate schedule of product administration [Unknown]
  - Product prescribing issue [Unknown]
